FAERS Safety Report 14577153 (Version 1)
Quarter: 2018Q1

REPORT INFORMATION
  Report Type: Spontaneous
  Country: US (occurrence: US)
  Receive Date: 20180225
  Receipt Date: 20180225
  Transmission Date: 20180509
  Serious: No
  Sender: FDA-Public Use
  Company Number: None

PATIENT
  Age: 66 Year
  Sex: Male
  Weight: 105 kg

DRUGS (2)
  1. NAPROXEN. [Suspect]
     Active Substance: NAPROXEN
     Indication: PAIN
     Route: 048
  2. LEVOFLOXACIN. [Suspect]
     Active Substance: LEVOFLOXACIN
     Indication: PNEUMONIA
     Route: 048
     Dates: start: 20170102, end: 20170104

REACTIONS (10)
  - Blood creatinine increased [None]
  - Abdominal pain [None]
  - Dyspnoea exertional [None]
  - Retching [None]
  - Acute kidney injury [None]
  - Pain [None]
  - Nausea [None]
  - Cough [None]
  - Fatigue [None]
  - Dysuria [None]

NARRATIVE: CASE EVENT DATE: 20170104
